FAERS Safety Report 15665992 (Version 2)
Quarter: 2018Q4

REPORT INFORMATION
  Report Type: Spontaneous
  Country: US (occurrence: US)
  Receive Date: 20181128
  Receipt Date: 20181207
  Transmission Date: 20190205
  Serious: No
  Sender: FDA-Public Use
  Company Number: US-PFIZER INC-2018481107

PATIENT
  Age: 79 Year
  Sex: Female
  Weight: 74 kg

DRUGS (2)
  1. FASLODEX [Concomitant]
     Active Substance: FULVESTRANT
     Dosage: UNK
  2. IBRANCE [Suspect]
     Active Substance: PALBOCICLIB
     Indication: BREAST CANCER METASTATIC
     Dosage: 125 MG, CYCLIC (D 1-21 Q 28 DAYS)
     Route: 048
     Dates: start: 20181108

REACTIONS (8)
  - Stomatitis [Unknown]
  - Muscle spasms [Unknown]
  - Upper respiratory tract congestion [Unknown]
  - Nasopharyngitis [Unknown]
  - Cough [Unknown]
  - Fatigue [Unknown]
  - Asthenia [Not Recovered/Not Resolved]
  - Red blood cell count decreased [Unknown]

NARRATIVE: CASE EVENT DATE: 201811
